FAERS Safety Report 8608529-7 (Version None)
Quarter: 2012Q3

REPORT INFORMATION
  Report Type: 
  Country: None (occurrence: None)
  Receive Date: 20120809
  Receipt Date: 20120809
  Transmission Date: 20120928
  Serious: Yes (Other)
  Sender: FDA-Public Use
  Company Number: None

PATIENT
  Age: 26 Year
  Sex: Male
  Weight: 97.5234 kg

DRUGS (2)
  1. ORPHENADRINE CITRATE [Suspect]
     Indication: MUSCLE SPASMS
     Dosage: 1 OR 2 AS NEEDED
     Dates: start: 20120727, end: 20120807
  2. PREDNISONE TAB [Suspect]
     Dosage: 2 DAILY 7 DAYS
     Dates: start: 20120727, end: 20120803

REACTIONS (10)
  - VOMITING [None]
  - NECK PAIN [None]
  - MUSCULOSKELETAL PAIN [None]
  - PAIN [None]
  - PSYCHOMOTOR HYPERACTIVITY [None]
  - MUSCULOSKELETAL DISORDER [None]
  - PALPITATIONS [None]
  - MIGRAINE [None]
  - TREMOR [None]
  - DISCOMFORT [None]
